FAERS Safety Report 17827792 (Version 1)
Quarter: 2020Q2

REPORT INFORMATION
  Report Type: Spontaneous
  Country: NO (occurrence: NO)
  Receive Date: 20200527
  Receipt Date: 20200527
  Transmission Date: 20200714
  Serious: Yes (Death, Hospitalization, Other)
  Sender: FDA-Public Use
  Company Number: NO-MYLANLABS-2020M1051672

PATIENT
  Age: 35 Year
  Sex: Male

DRUGS (11)
  1. LEPONEX [Suspect]
     Active Substance: CLOZAPINE
     Indication: PSYCHOTIC DISORDER
     Dosage: 50 MILLIGRAM
  2. SEROQUEL [Suspect]
     Active Substance: QUETIAPINE FUMARATE
     Indication: PSYCHOTIC DISORDER
     Dosage: 50 MG IN THE EVENING
     Route: 048
     Dates: start: 201908
  3. SEROQUEL [Suspect]
     Active Substance: QUETIAPINE FUMARATE
     Indication: ENCEPHALITIS PERIAXIALIS DIFFUSA
     Dosage: 500 MILLIGRAM, QD
     Route: 048
     Dates: start: 2019
  4. APODORM [Concomitant]
     Active Substance: NITRAZEPAM
  5. VALIUM [Concomitant]
     Active Substance: DIAZEPAM
     Dosage: UNK
  6. REMERON [Concomitant]
     Active Substance: MIRTAZAPINE
     Dosage: UNK
  7. SEROQUEL [Suspect]
     Active Substance: QUETIAPINE FUMARATE
     Dosage: 75 MG IN THE EVENING
     Route: 048
  8. CIRCADIN [Concomitant]
     Active Substance: MELATONIN
     Dosage: UNK
  9. SEROQUEL [Suspect]
     Active Substance: QUETIAPINE FUMARATE
     Indication: SLEEP DISORDER
     Dosage: 25 MG IN THE EVENING
     Route: 048
     Dates: start: 20190101, end: 20190806
  10. LEPONEX [Suspect]
     Active Substance: CLOZAPINE
     Indication: BEHAVIOUR DISORDER
     Dosage: 75 MILLIGRAM
     Dates: start: 2019
  11. VALLERGAN [Concomitant]
     Active Substance: TRIMEPRAZINE
     Dosage: UNK

REACTIONS (20)
  - Joint stiffness [Unknown]
  - Dysphagia [Unknown]
  - Dizziness [Unknown]
  - Somnolence [Unknown]
  - Fatigue [Unknown]
  - Death [Fatal]
  - Delusion [Unknown]
  - Anger [Unknown]
  - Agitation [Unknown]
  - Disinhibition [Unknown]
  - Dry mouth [Unknown]
  - Drug ineffective [Unknown]
  - Behaviour disorder [Unknown]
  - Ataxia [Unknown]
  - Aggression [Unknown]
  - Psychotic disorder [Unknown]
  - Pollakiuria [Unknown]
  - Hallucination, auditory [Unknown]
  - Off label use [Unknown]
  - General physical health deterioration [Unknown]

NARRATIVE: CASE EVENT DATE: 2019
